FAERS Safety Report 5506399-7 (Version None)
Quarter: 2007Q4

REPORT INFORMATION
  Report Type: 
  Country: None (occurrence: None)
  Receive Date: 20071101
  Receipt Date: 20071022
  Transmission Date: 20080405
  Serious: Yes (Death)
  Sender: FDA-Public Use
  Company Number: 2007US002447

PATIENT
  Age: 60 Year
  Sex: Male

DRUGS (2)
  1. PROGRAF [Suspect]
     Indication: TRANSPLANT REJECTION
     Dosage: 5 MG,
  2. OMEPRAZOLE [Concomitant]

REACTIONS (1)
  - DEATH [None]
